FAERS Safety Report 4738081-8 (Version None)
Quarter: 2005Q3

REPORT INFORMATION
  Report Type: 
  Country: None (occurrence: None)
  Receive Date: 20050809
  Receipt Date: 20050802
  Transmission Date: 20060218
  Serious: Yes (Death)
  Sender: FDA-Public Use
  Company Number: 200512301EU

PATIENT
  Age: 75 Year
  Sex: Female

DRUGS (1)
  1. LASIX [Suspect]

REACTIONS (2)
  - ASTHENIA [None]
  - CARDIAC FAILURE ACUTE [None]
